FAERS Safety Report 6372651-9 (Version None)
Quarter: 2009Q3

REPORT INFORMATION
  Report Type: 
  Country: None (occurrence: None)
  Receive Date: 20090924
  Receipt Date: 20090410
  Transmission Date: 20100115
  Serious: No
  Sender: FDA-Public Use
  Company Number: US-ASTRAZENECA-2008UW27544

PATIENT
  Age: 45 Year
  Sex: Female
  Weight: 103 kg

DRUGS (7)
  1. SEROQUEL [Suspect]
     Indication: BIPOLAR I DISORDER
     Dosage: 25 MG, 50 MG, 100 MG, 200 MG
     Route: 048
     Dates: end: 20070101
  2. SEROQUEL [Suspect]
     Indication: BIPOLAR DISORDER
     Dosage: 25 MG, 50 MG, 100 MG, 200 MG
     Route: 048
     Dates: end: 20070101
  3. ABILIFY [Concomitant]
  4. GEODON [Concomitant]
  5. NAVANE [Concomitant]
  6. RISPERDAL [Concomitant]
  7. ZYPREXA [Concomitant]

REACTIONS (6)
  - BLOOD CHOLESTEROL INCREASED [None]
  - CARDIAC DISORDER [None]
  - GALLBLADDER DISORDER [None]
  - HERNIA [None]
  - JOINT INJURY [None]
  - TYPE 2 DIABETES MELLITUS [None]
